FAERS Safety Report 4948535-7 (Version None)
Quarter: 2006Q1

REPORT INFORMATION
  Report Type: 
  Country: None (occurrence: None)
  Receive Date: 20060320
  Receipt Date: 20060203
  Transmission Date: 20060701
  Serious: Yes (Hospitalization, Disabling)
  Sender: FDA-Public Use
  Company Number: US-MERCK-0602USA00642

PATIENT
  Age: 62 Year
  Sex: Male
  Weight: 95 kg

DRUGS (12)
  1. VIOXX [Suspect]
     Indication: ARTHRALGIA
     Route: 048
     Dates: start: 19990101, end: 20040101
  2. VIOXX [Suspect]
     Route: 048
     Dates: start: 19990101, end: 20040101
  3. VIOXX [Suspect]
     Indication: GOUT
     Route: 048
     Dates: start: 19990101, end: 20040101
  4. VIOXX [Suspect]
     Route: 048
     Dates: start: 19990101, end: 20040101
  5. VICODIN [Concomitant]
     Route: 065
  6. CORTISONE [Concomitant]
     Route: 065
  7. ASPIRIN [Concomitant]
     Route: 065
  8. PLAVIX [Concomitant]
     Route: 065
  9. AVACOR [Concomitant]
     Route: 065
  10. ATENOLOL [Concomitant]
     Route: 065
  11. NITROGLYCERIN [Concomitant]
     Route: 065
  12. LODINE [Concomitant]
     Route: 065

REACTIONS (3)
  - ANGINA PECTORIS [None]
  - DRUG ADMINISTRATION ERROR [None]
  - MYOCARDIAL INFARCTION [None]
